FAERS Safety Report 8596013 (Version 2)
Quarter: 2013Q4

REPORT INFORMATION
  Report Type: Spontaneous
  Country: US (occurrence: US)
  Receive Date: 20120605
  Receipt Date: 20131011
  Transmission Date: 20140711
  Serious: Yes (Hospitalization, Disabling, Other)
  Sender: FDA-Public Use
  Company Number: US-ASTRAZENECA-2012SE35627

PATIENT
  Age: 17334 Day
  Sex: Male

DRUGS (20)
  1. NEXIUM [Suspect]
     Route: 048
  2. PRILOSEC OTC [Suspect]
     Route: 048
     Dates: start: 1975, end: 1995
  3. PEPCID [Concomitant]
     Indication: GASTROOESOPHAGEAL REFLUX DISEASE
  4. PROTONIX [Concomitant]
  5. TUMS [Concomitant]
     Dosage: AS NEEDED
  6. BIAX [Concomitant]
  7. PAXIL [Concomitant]
  8. XANAX [Concomitant]
     Indication: ANXIETY
  9. VALIUM [Concomitant]
     Indication: ANXIETY
  10. LISINOPRIL [Concomitant]
  11. MORPHINE [Concomitant]
     Indication: PAIN
  12. OXYCODONE [Concomitant]
     Indication: PAIN
  13. ZYPREXA [Concomitant]
     Indication: INSOMNIA
  14. POTASSIUM [Concomitant]
  15. SIMVASTATIN [Concomitant]
     Indication: BLOOD CHOLESTEROL ABNORMAL
  16. LOVASTATIN [Concomitant]
     Indication: BLOOD CHOLESTEROL ABNORMAL
  17. ASPIRIN [Concomitant]
  18. HCTZ [Concomitant]
  19. TAGAMET [Concomitant]
  20. DIOXAN [Concomitant]

REACTIONS (11)
  - Myocardial infarction [Unknown]
  - Pneumonia [Unknown]
  - Rib fracture [Unknown]
  - Spinal fracture [Unknown]
  - Chronic obstructive pulmonary disease [Unknown]
  - Diabetes mellitus [Unknown]
  - Barrett^s oesophagus [Unknown]
  - Cardiac disorder [Unknown]
  - Osteoporosis [Unknown]
  - Osteopenia [Unknown]
  - Depression [Unknown]
